FAERS Safety Report 8855180 (Version 1)
Quarter: 2012Q4

REPORT INFORMATION
  Report Type: 
  Country: US (occurrence: US)
  Receive Date: 20121023
  Receipt Date: 20121023
  Transmission Date: 20130627
  Serious: No
  Sender: FDA-Public Use
  Company Number: US-AMGEN-USASP2012060134

PATIENT
  Sex: Male

DRUGS (10)
  1. ENBREL [Suspect]
     Indication: PSORIASIS
     Dosage: 50 mg, qwk
     Route: 058
     Dates: start: 2003
  2. VITAMIN B [Concomitant]
     Dosage: UNK
  3. IBUPROFEN [Concomitant]
     Dosage: 800 mg, UNK
  4. MORPHINE [Concomitant]
     Dosage: 30 mg, UNK
  5. LISINOPRIL [Concomitant]
     Dosage: 20 mg, UNK
  6. MULTIVITAMINS, PLAIN [Concomitant]
     Dosage: UNK
  7. HYDROCHLOROTH [Concomitant]
     Dosage: 12.5 mg, UNK
  8. PAPAYA ENZYME                      /00389401/ [Concomitant]
     Dosage: UNK
  9. VITAMIN D /00107901/ [Concomitant]
     Dosage: 1000 unit, UNK
  10. CALCIUM [Concomitant]
     Dosage: 600 UNK, UNK

REACTIONS (5)
  - Therapeutic response decreased [Unknown]
  - Arthralgia [Unknown]
  - Oedema peripheral [Unknown]
  - Psoriasis [Unknown]
  - Injection site haemorrhage [Unknown]
